FAERS Safety Report 18550714 (Version 7)
Quarter: 2021Q2

REPORT INFORMATION
  Report Type: Report from Study
  Country: US (occurrence: US)
  Receive Date: 20201126
  Receipt Date: 20210511
  Transmission Date: 20210717
  Serious: No
  Sender: FDA-Public Use
  Company Number: NVSC2020US316155

PATIENT
  Sex: Male

DRUGS (2)
  1. ENTRESTO [Suspect]
     Active Substance: SACUBITRIL\VALSARTAN
     Indication: PRODUCT USED FOR UNKNOWN INDICATION
     Dosage: 1 DF, BID (24/26 MG)
     Route: 048
  2. ENTRESTO [Suspect]
     Active Substance: SACUBITRIL\VALSARTAN
     Dosage: 24.26 MG, BID
     Route: 048

REACTIONS (16)
  - Malaise [Unknown]
  - Oropharyngeal pain [Unknown]
  - Chest discomfort [Unknown]
  - Fatigue [Unknown]
  - Illness [Unknown]
  - Blood glucose abnormal [Unknown]
  - Blood creatine decreased [Unknown]
  - Pain of skin [Unknown]
  - Vomiting [Unknown]
  - Pain in extremity [Unknown]
  - Hypotension [Unknown]
  - Blood phosphorus increased [Unknown]
  - Blood potassium increased [Unknown]
  - Chills [Unknown]
  - Back pain [Unknown]
  - Nausea [Unknown]
